FAERS Safety Report 18618252 (Version 1)
Quarter: 2020Q4

REPORT INFORMATION
  Report Type: Spontaneous
  Country: DE (occurrence: DE)
  Receive Date: 20201215
  Receipt Date: 20201215
  Transmission Date: 20210114
  Serious: No
  Sender: FDA-Public Use
  Company Number: DE-HORMOSAN PHARMA GMBH-2020-04098

PATIENT
  Age: 68 Year
  Sex: Female

DRUGS (6)
  1. QUETIAPIN-HORMOSAN 300 MG RETARDTABLETTEN [Interacting]
     Active Substance: QUETIAPINE FUMARATE
     Indication: RESTLESSNESS
     Dosage: 25 MILLIGRAM, QD
     Route: 048
  2. QUETIAPIN-HORMOSAN 300 MG RETARDTABLETTEN [Interacting]
     Active Substance: QUETIAPINE FUMARATE
     Dosage: 200 MILLIGRAM, QD
     Route: 048
  3. QUETIAPIN-HORMOSAN 300 MG RETARDTABLETTEN [Suspect]
     Active Substance: QUETIAPINE FUMARATE
     Indication: ANXIETY
     Dosage: 300 MILLIGRAM, QD
     Route: 048
     Dates: start: 2016
  4. QUETIAPIN-HORMOSAN 300 MG RETARDTABLETTEN [Interacting]
     Active Substance: QUETIAPINE FUMARATE
     Dosage: 50 MILLIGRAM, QD
     Route: 048
  5. QUETIAPIN-HORMOSAN 300 MG RETARDTABLETTEN [Interacting]
     Active Substance: QUETIAPINE FUMARATE
     Dosage: 150 MILLIGRAM, QD
     Route: 048
  6. METHYLROSANILINIUM [GENTIAN VIOLET] [Interacting]
     Active Substance: GENTIAN VIOLET
     Indication: FUNGAL INFECTION
     Dosage: UNK
     Route: 065

REACTIONS (11)
  - Fungal infection [Unknown]
  - Headache [Unknown]
  - Body temperature increased [Unknown]
  - Drug interaction [Unknown]
  - Withdrawal syndrome [Unknown]
  - Wrong technique in product usage process [Unknown]
  - Otorrhoea [Unknown]
  - Tremor [Unknown]
  - Pruritus [Recovered/Resolved]
  - Nausea [Unknown]
  - Influenza like illness [Unknown]

NARRATIVE: CASE EVENT DATE: 20200720
